FAERS Safety Report 11452851 (Version 1)
Quarter: 2015Q3

REPORT INFORMATION
  Report Type: Spontaneous
  Country: DE (occurrence: DE)
  Receive Date: 20150903
  Receipt Date: 20150903
  Transmission Date: 20151125
  Serious: Yes (Other)
  Sender: FDA-Public Use
  Company Number: DE-PFIZER INC-2015284425

PATIENT
  Age: 47 Year
  Sex: Male

DRUGS (1)
  1. CAMPTO [Suspect]
     Active Substance: IRINOTECAN

REACTIONS (1)
  - Urinary retention [Unknown]
